FAERS Safety Report 16740535 (Version 3)
Quarter: 2019Q3

REPORT INFORMATION
  Report Type: Spontaneous
  Country: US (occurrence: US)
  Receive Date: 20190826
  Receipt Date: 20190905
  Transmission Date: 20191005
  Serious: Yes (Other)
  Sender: FDA-Public Use
  Company Number: US-PFIZER INC-2019360881

PATIENT
  Age: 55 Year
  Sex: Female
  Weight: 78 kg

DRUGS (1)
  1. PREMARIN [Suspect]
     Active Substance: ESTROGENS, CONJUGATED
     Indication: PROLAPSE
     Dosage: 0.625 MG, DAILY (0.625 MG ONE APPLICATOR A DAY INSERTED VAGINALLY)
     Route: 067
     Dates: start: 20190602

REACTIONS (6)
  - Pain [Unknown]
  - Abdominal pain [Recovering/Resolving]
  - Drug hypersensitivity [Unknown]
  - Vulvovaginal discomfort [Recovered/Resolved]
  - Product use in unapproved indication [Unknown]
  - Off label use [Unknown]

NARRATIVE: CASE EVENT DATE: 20190602
